FAERS Safety Report 11093534 (Version 1)
Quarter: 2015Q2

REPORT INFORMATION
  Report Type: Spontaneous
  Country: US (occurrence: US)
  Receive Date: 20150506
  Receipt Date: 20150506
  Transmission Date: 20150821
  Serious: No
  Sender: FDA-Public Use
  Company Number: US-BAYER-2015-171217

PATIENT
  Sex: Male

DRUGS (2)
  1. LEVITRA [Suspect]
     Active Substance: VARDENAFIL HYDROCHLORIDE TRIHYDRATE
     Dosage: 20 MG, UNK
     Route: 048
  2. DITROPAN XL [Suspect]
     Active Substance: OXYBUTYNIN CHLORIDE

REACTIONS (1)
  - Drug ineffective [None]
